FAERS Safety Report 6423503-7 (Version None)
Quarter: 2009Q4

REPORT INFORMATION
  Report Type: 
  Country: None (occurrence: None)
  Receive Date: 20091030
  Receipt Date: 20091030
  Transmission Date: 20100525
  Serious: Yes (Disabling)
  Sender: FDA-Public Use
  Company Number: None

PATIENT
  Age: 45 Year
  Sex: Female
  Weight: 59.8748 kg

DRUGS (1)
  1. ZICAM NASEL GEL [Suspect]
     Indication: NASAL CONGESTION
     Dosage: 1 SQUIRT EACH NOSTRIL 1
     Dates: start: 20090904

REACTIONS (2)
  - AGEUSIA [None]
  - ANOSMIA [None]
